FAERS Safety Report 7834034 (Version 5)
Quarter: 2016Q1

REPORT INFORMATION
  Report Type: Spontaneous
  Country: US (occurrence: US)
  Receive Date: 20110228
  Receipt Date: 20160223
  Transmission Date: 20160526
  Serious: Yes (Other)
  Sender: FDA-Public Use
  Company Number: US-ASTRAZENECA-2011SE09698

PATIENT
  Age: 29319 Day
  Sex: Male
  Weight: 92.1 kg

DRUGS (1)
  1. CRESTOR [Suspect]
     Active Substance: ROSUVASTATIN CALCIUM
     Indication: BLOOD CHOLESTEROL ABNORMAL
     Route: 048
     Dates: start: 200709

REACTIONS (7)
  - Impaired driving ability [Unknown]
  - Myocardial infarction [Unknown]
  - Contusion [Recovering/Resolving]
  - Amnesia [Unknown]
  - Blindness unilateral [Unknown]
  - Impaired work ability [Unknown]
  - Fall [Unknown]

NARRATIVE: CASE EVENT DATE: 20160128
